FAERS Safety Report 14491814 (Version 1)
Quarter: 2018Q1

REPORT INFORMATION
  Report Type: Report from Study
  Country: DE (occurrence: DE)
  Receive Date: 20180206
  Receipt Date: 20180206
  Transmission Date: 20180509
  Serious: Yes (Hospitalization)
  Sender: FDA-Public Use
  Company Number: PHHY2018DE009707

PATIENT
  Sex: Male
  Weight: 82 kg

DRUGS (4)
  1. COSENTYX [Suspect]
     Active Substance: SECUKINUMAB
     Indication: ANKYLOSING SPONDYLITIS
     Dosage: 300 MG, ONCE
     Route: 065
     Dates: start: 20171006, end: 20171103
  2. FOLIC ACID. [Concomitant]
     Active Substance: FOLIC ACID
     Indication: PROPHYLAXIS
     Dosage: 1 DF, QW
     Route: 048
     Dates: start: 201711
  3. COSENTYX [Suspect]
     Active Substance: SECUKINUMAB
     Indication: PSORIATIC ARTHROPATHY
     Dosage: 300 MG, ONCE
     Route: 065
     Dates: start: 20171229
  4. MTX [Concomitant]
     Active Substance: METHOTREXATE SODIUM
     Indication: ANKYLOSING SPONDYLITIS
     Dosage: 1 DF, QW
     Route: 048
     Dates: start: 20171124

REACTIONS (3)
  - Psoriasis [Unknown]
  - Palmoplantar keratoderma [Unknown]
  - Arthropathy [Unknown]

NARRATIVE: CASE EVENT DATE: 20171124
